FAERS Safety Report 10086716 (Version 1)
Quarter: 2014Q2

REPORT INFORMATION
  Report Type: Spontaneous
  Country: US (occurrence: None)
  Receive Date: 20140417
  Receipt Date: 20140417
  Transmission Date: 20141212
  Serious: Yes (Life-Threatening, Other)
  Sender: FDA-Public Use
  Company Number: None

PATIENT
  Age: 59 Year
  Sex: Male
  Weight: 61.24 kg

DRUGS (1)
  1. FENTANYL [Suspect]
     Indication: BACK PAIN
     Dosage: 1 PATCH EVERY 3 DAYS
     Dates: start: 20140404, end: 20140405

REACTIONS (8)
  - Dizziness [None]
  - Headache [None]
  - Vision blurred [None]
  - Dry mouth [None]
  - Muscle twitching [None]
  - Nausea [None]
  - Vomiting [None]
  - Dizziness [None]
